FAERS Safety Report 24202257 (Version 4)
Quarter: 2025Q4

REPORT INFORMATION
  Report Type: Spontaneous
  Country: CA (occurrence: CA)
  Receive Date: 20240812
  Receipt Date: 20251126
  Transmission Date: 20260117
  Serious: Yes (Congenital Anomaly)
  Sender: BRISTOL-MYERS SQUIBB COMPANY
  Company Number: CA-BRISTOL-MYERS SQUIBB COMPANY-2024-124700

PATIENT

DRUGS (473)
  1. ORENCIA [Suspect]
     Active Substance: ABATACEPT
     Indication: Product used for unknown indication
  2. ORENCIA [Suspect]
     Active Substance: ABATACEPT
     Indication: Product used for unknown indication
  3. ORENCIA [Suspect]
     Active Substance: ABATACEPT
  4. ORENCIA [Suspect]
     Active Substance: ABATACEPT
  5. ORENCIA [Suspect]
     Active Substance: ABATACEPT
     Indication: Product used for unknown indication
  6. ORENCIA [Suspect]
     Active Substance: ABATACEPT
  7. ORENCIA [Suspect]
     Active Substance: ABATACEPT
  8. ORENCIA [Suspect]
     Active Substance: ABATACEPT
  9. ORENCIA [Suspect]
     Active Substance: ABATACEPT
  10. ORENCIA [Suspect]
     Active Substance: ABATACEPT
  11. ORENCIA [Suspect]
     Active Substance: ABATACEPT
  12. TRIAMCINOLONE ACETONIDE [Suspect]
     Active Substance: TRIAMCINOLONE ACETONIDE
     Indication: Product used for unknown indication
     Dosage: SUSPENSION INTRA-ARTICULAR
  13. TRIAMCINOLONE ACETONIDE [Suspect]
     Active Substance: TRIAMCINOLONE ACETONIDE
  14. TRIAMCINOLONE ACETONIDE [Suspect]
     Active Substance: TRIAMCINOLONE ACETONIDE
  15. TRIAMCINOLONE ACETONIDE [Suspect]
     Active Substance: TRIAMCINOLONE ACETONIDE
  16. ACETAMINOPHEN [Concomitant]
     Active Substance: ACETAMINOPHEN
     Indication: Product used for unknown indication
  17. ACETAMINOPHEN [Concomitant]
     Active Substance: ACETAMINOPHEN
  18. ACETAMINOPHEN [Concomitant]
     Active Substance: ACETAMINOPHEN
  19. ACETAMINOPHEN AND CODEINE [Concomitant]
     Active Substance: ACETAMINOPHEN\CODEINE PHOSPHATE
     Indication: Product used for unknown indication
  20. ACTEMRA [Concomitant]
     Active Substance: TOCILIZUMAB
     Indication: Product used for unknown indication
  21. ACTEMRA [Concomitant]
     Active Substance: TOCILIZUMAB
  22. ACTEMRA [Concomitant]
     Active Substance: TOCILIZUMAB
  23. ACTEMRA [Concomitant]
     Active Substance: TOCILIZUMAB
  24. ACTEMRA [Concomitant]
     Active Substance: TOCILIZUMAB
  25. ACTEMRA [Concomitant]
     Active Substance: TOCILIZUMAB
  26. ACTEMRA [Concomitant]
     Active Substance: TOCILIZUMAB
  27. ACTEMRA [Concomitant]
     Active Substance: TOCILIZUMAB
  28. ACTEMRA [Concomitant]
     Active Substance: TOCILIZUMAB
  29. ACTEMRA [Concomitant]
     Active Substance: TOCILIZUMAB
  30. ACTEMRA [Concomitant]
     Active Substance: TOCILIZUMAB
  31. ACTEMRA [Concomitant]
     Active Substance: TOCILIZUMAB
  32. ACTEMRA [Concomitant]
     Active Substance: TOCILIZUMAB
  33. ACTEMRA [Concomitant]
     Active Substance: TOCILIZUMAB
  34. ACTEMRA [Concomitant]
     Active Substance: TOCILIZUMAB
  35. ACTEMRA [Concomitant]
     Active Substance: TOCILIZUMAB
  36. ACTEMRA [Concomitant]
     Active Substance: TOCILIZUMAB
  37. ACTEMRA [Concomitant]
     Active Substance: TOCILIZUMAB
  38. ACTEMRA [Concomitant]
     Active Substance: TOCILIZUMAB
  39. ACTEMRA [Concomitant]
     Active Substance: TOCILIZUMAB
  40. ACTEMRA [Concomitant]
     Active Substance: TOCILIZUMAB
  41. ACTEMRA [Concomitant]
     Active Substance: TOCILIZUMAB
  42. ACTEMRA [Concomitant]
     Active Substance: TOCILIZUMAB
  43. ACTEMRA [Concomitant]
     Active Substance: TOCILIZUMAB
  44. ACTEMRA [Concomitant]
     Active Substance: TOCILIZUMAB
  45. ACTEMRA [Concomitant]
     Active Substance: TOCILIZUMAB
  46. ADALIMUMAB [Concomitant]
     Active Substance: ADALIMUMAB
     Indication: Product used for unknown indication
  47. ADALIMUMAB [Concomitant]
     Active Substance: ADALIMUMAB
  48. ADALIMUMAB [Concomitant]
     Active Substance: ADALIMUMAB
  49. ADALIMUMAB [Concomitant]
     Active Substance: ADALIMUMAB
  50. ADALIMUMAB [Concomitant]
     Active Substance: ADALIMUMAB
  51. AIMOVIG [Concomitant]
     Active Substance: ERENUMAB-AOOE
     Indication: Product used for unknown indication
  52. AIMOVIG [Concomitant]
     Active Substance: ERENUMAB-AOOE
  53. ALENDRONIC ACID [Concomitant]
     Active Substance: ALENDRONIC ACID
     Indication: Product used for unknown indication
  54. ALENDRONIC ACID [Concomitant]
     Active Substance: ALENDRONIC ACID
  55. ALENDRONIC ACID [Concomitant]
     Active Substance: ALENDRONIC ACID
  56. ALENDRONIC ACID [Concomitant]
     Active Substance: ALENDRONIC ACID
  57. LEFLUNOMIDE [Concomitant]
     Active Substance: LEFLUNOMIDE
     Indication: Product used for unknown indication
  58. LEFLUNOMIDE [Concomitant]
     Active Substance: LEFLUNOMIDE
  59. LEFLUNOMIDE [Concomitant]
     Active Substance: LEFLUNOMIDE
  60. PREDNISONE [Concomitant]
     Active Substance: PREDNISONE
     Indication: Product used for unknown indication
  61. PREDNISONE [Concomitant]
     Active Substance: PREDNISONE
  62. PREDNISONE [Concomitant]
     Active Substance: PREDNISONE
  63. PREDNISONE [Concomitant]
     Active Substance: PREDNISONE
  64. PREDNISONE [Concomitant]
     Active Substance: PREDNISONE
  65. PREDNISONE [Concomitant]
     Active Substance: PREDNISONE
  66. PREDNISONE [Concomitant]
     Active Substance: PREDNISONE
  67. PREDNISONE [Concomitant]
     Active Substance: PREDNISONE
  68. APREMILAST [Concomitant]
     Active Substance: APREMILAST
     Indication: Product used for unknown indication
  69. APREMILAST [Concomitant]
     Active Substance: APREMILAST
  70. ARAVA [Concomitant]
     Active Substance: LEFLUNOMIDE
     Indication: Product used for unknown indication
  71. ARAVA [Concomitant]
     Active Substance: LEFLUNOMIDE
  72. ARAVA [Concomitant]
     Active Substance: LEFLUNOMIDE
  73. ARAVA [Concomitant]
     Active Substance: LEFLUNOMIDE
  74. ATOMOXETINE [Concomitant]
     Active Substance: ATOMOXETINE
     Indication: Product used for unknown indication
  75. AZATHIOPRINE SODIUM [Concomitant]
     Active Substance: AZATHIOPRINE SODIUM
     Indication: Product used for unknown indication
  76. BERINERT [Concomitant]
     Active Substance: HUMAN C1-ESTERASE INHIBITOR
     Indication: Product used for unknown indication
  77. BOTULINUM TOXIN TYPE A [Concomitant]
     Active Substance: BOTULINUM TOXIN TYPE A
     Indication: Product used for unknown indication
  78. BUTRANS [Concomitant]
     Active Substance: BUPRENORPHINE
     Indication: Product used for unknown indication
  79. CALCIUM ASCORBATE [Concomitant]
     Active Substance: CALCIUM ASCORBATE
     Indication: Product used for unknown indication
  80. CANDESARTAN [Concomitant]
     Active Substance: CANDESARTAN
     Indication: Product used for unknown indication
  81. CELEBREX [Concomitant]
     Active Substance: CELECOXIB
     Indication: Product used for unknown indication
  82. CELEBREX [Concomitant]
     Active Substance: CELECOXIB
  83. CERTOLIZUMAB PEGOL [Concomitant]
     Active Substance: CERTOLIZUMAB PEGOL
     Indication: Product used for unknown indication
  84. CERTOLIZUMAB PEGOL [Concomitant]
     Active Substance: CERTOLIZUMAB PEGOL
  85. CERTOLIZUMAB PEGOL [Concomitant]
     Active Substance: CERTOLIZUMAB PEGOL
  86. CERTOLIZUMAB PEGOL [Concomitant]
     Active Substance: CERTOLIZUMAB PEGOL
  87. CERTOLIZUMAB PEGOL [Concomitant]
     Active Substance: CERTOLIZUMAB PEGOL
  88. CETIRIZINE HYDROCHLORIDE [Concomitant]
     Active Substance: CETIRIZINE HYDROCHLORIDE
     Indication: Product used for unknown indication
  89. CETIRIZINE HYDROCHLORIDE [Concomitant]
     Active Substance: CETIRIZINE HYDROCHLORIDE
  90. CETIRIZINE HYDROCHLORIDE [Concomitant]
     Active Substance: CETIRIZINE HYDROCHLORIDE
  91. CETIRIZINE HYDROCHLORIDE [Concomitant]
     Active Substance: CETIRIZINE HYDROCHLORIDE
  92. CETIRIZINE HYDROCHLORIDE [Concomitant]
     Active Substance: CETIRIZINE HYDROCHLORIDE
  93. CETIRIZINE HYDROCHLORIDE [Concomitant]
     Active Substance: CETIRIZINE HYDROCHLORIDE
  94. CETIRIZINE HYDROCHLORIDE [Concomitant]
     Active Substance: CETIRIZINE HYDROCHLORIDE
  95. CETIRIZINE HYDROCHLORIDE [Concomitant]
     Active Substance: CETIRIZINE HYDROCHLORIDE
  96. CETIRIZINE HYDROCHLORIDE [Concomitant]
     Active Substance: CETIRIZINE HYDROCHLORIDE
  97. CETIRIZINE HYDROCHLORIDE [Concomitant]
     Active Substance: CETIRIZINE HYDROCHLORIDE
  98. CETIRIZINE HYDROCHLORIDE [Concomitant]
     Active Substance: CETIRIZINE HYDROCHLORIDE
  99. CETIRIZINE HYDROCHLORIDE [Concomitant]
     Active Substance: CETIRIZINE HYDROCHLORIDE
  100. CETIRIZINE HYDROCHLORIDE [Concomitant]
     Active Substance: CETIRIZINE HYDROCHLORIDE
  101. CETIRIZINE HYDROCHLORIDE [Concomitant]
     Active Substance: CETIRIZINE HYDROCHLORIDE
  102. CETIRIZINE HYDROCHLORIDE [Concomitant]
     Active Substance: CETIRIZINE HYDROCHLORIDE
  103. CETIRIZINE HYDROCHLORIDE [Concomitant]
     Active Substance: CETIRIZINE HYDROCHLORIDE
  104. CETIRIZINE HYDROCHLORIDE [Concomitant]
     Active Substance: CETIRIZINE HYDROCHLORIDE
  105. CHOLECALCIFEROL [Concomitant]
     Active Substance: CHOLECALCIFEROL
     Indication: Product used for unknown indication
  106. CIMZIA [Concomitant]
     Active Substance: CERTOLIZUMAB PEGOL
     Indication: Product used for unknown indication
  107. CIMZIA [Concomitant]
     Active Substance: CERTOLIZUMAB PEGOL
  108. CIMZIA [Concomitant]
     Active Substance: CERTOLIZUMAB PEGOL
  109. CIMZIA [Concomitant]
     Active Substance: CERTOLIZUMAB PEGOL
  110. CIMZIA [Concomitant]
     Active Substance: CERTOLIZUMAB PEGOL
  111. CIMZIA [Concomitant]
     Active Substance: CERTOLIZUMAB PEGOL
  112. CIMZIA [Concomitant]
     Active Substance: CERTOLIZUMAB PEGOL
  113. CIMZIA [Concomitant]
     Active Substance: CERTOLIZUMAB PEGOL
  114. CORTISONE ACETATE [Concomitant]
     Active Substance: CORTISONE ACETATE
     Indication: Product used for unknown indication
  115. CORTISONE ACETATE [Concomitant]
     Active Substance: CORTISONE ACETATE
  116. CORTISONE ACETATE [Concomitant]
     Active Substance: CORTISONE ACETATE
  117. CORTISONE ACETATE [Concomitant]
     Active Substance: CORTISONE ACETATE
  118. CORTISONE ACETATE [Concomitant]
     Active Substance: CORTISONE ACETATE
  119. COSENTYX [Concomitant]
     Active Substance: SECUKINUMAB
     Indication: Product used for unknown indication
  120. COSENTYX [Concomitant]
     Active Substance: SECUKINUMAB
  121. COSENTYX [Concomitant]
     Active Substance: SECUKINUMAB
  122. COSENTYX [Concomitant]
     Active Substance: SECUKINUMAB
     Dosage: PRE FILLEDSYRINGE
  123. DESOXIMETASONE [Concomitant]
     Active Substance: DESOXIMETASONE
     Indication: Product used for unknown indication
  124. DESOXIMETASONE [Concomitant]
     Active Substance: DESOXIMETASONE
  125. DESOXIMETASONE [Concomitant]
     Active Substance: DESOXIMETASONE
  126. DESOXIMETASONE [Concomitant]
     Active Substance: DESOXIMETASONE
  127. DESOXIMETASONE [Concomitant]
     Active Substance: DESOXIMETASONE
  128. DESOXIMETASONE [Concomitant]
     Active Substance: DESOXIMETASONE
  129. DESOXIMETASONE [Concomitant]
     Active Substance: DESOXIMETASONE
  130. DESOXIMETASONE [Concomitant]
     Active Substance: DESOXIMETASONE
  131. DICLOFENAC DIETHYLAMINE [Concomitant]
     Active Substance: DICLOFENAC DIETHYLAMINE
     Indication: Product used for unknown indication
  132. DICLOFENAC SODIUM [Concomitant]
     Active Substance: DICLOFENAC SODIUM
     Indication: Product used for unknown indication
  133. DICLOFENAC SODIUM [Concomitant]
     Active Substance: DICLOFENAC SODIUM
  134. DICLOFENAC SODIUM [Concomitant]
     Active Substance: DICLOFENAC SODIUM
  135. DOMPERIDONE MALEATE [Concomitant]
     Active Substance: DOMPERIDONE MALEATE
     Indication: Product used for unknown indication
  136. ENBREL [Concomitant]
     Active Substance: ETANERCEPT
     Indication: Product used for unknown indication
  137. ENBREL [Concomitant]
     Active Substance: ETANERCEPT
  138. ENBREL [Concomitant]
     Active Substance: ETANERCEPT
  139. ENBREL [Concomitant]
     Active Substance: ETANERCEPT
  140. ENBREL [Concomitant]
     Active Substance: ETANERCEPT
  141. ENBREL [Concomitant]
     Active Substance: ETANERCEPT
  142. ERELZI [Concomitant]
     Active Substance: ETANERCEPT-SZZS
     Indication: Product used for unknown indication
  143. ERELZI [Concomitant]
     Active Substance: ETANERCEPT-SZZS
  144. ERELZI [Concomitant]
     Active Substance: ETANERCEPT-SZZS
  145. ERELZI [Concomitant]
     Active Substance: ETANERCEPT-SZZS
  146. FLUMETHASONE [Concomitant]
     Active Substance: FLUMETHASONE
     Indication: Product used for unknown indication
  147. FLUMETHASONE PIVALATE [Concomitant]
     Active Substance: FLUMETHASONE PIVALATE
     Indication: Product used for unknown indication
  148. FLUMETHASONE PIVALATE [Concomitant]
     Active Substance: FLUMETHASONE PIVALATE
  149. FLUMETHASONE PIVALATE [Concomitant]
     Active Substance: FLUMETHASONE PIVALATE
  150. FOSAMAX [Concomitant]
     Active Substance: ALENDRONATE SODIUM
     Indication: Product used for unknown indication
  151. FOSAMAX [Concomitant]
     Active Substance: ALENDRONATE SODIUM
  152. FOSAMAX [Concomitant]
     Active Substance: ALENDRONATE SODIUM
  153. FOSAMAX [Concomitant]
     Active Substance: ALENDRONATE SODIUM
  154. FOSAMAX [Concomitant]
     Active Substance: ALENDRONATE SODIUM
  155. GOLD [Concomitant]
     Active Substance: GOLD
     Indication: Product used for unknown indication
  156. GOLD SODIUM THIOMALATE [Concomitant]
     Active Substance: GOLD SODIUM THIOMALATE
     Indication: Product used for unknown indication
  157. GOLIMUMAB [Concomitant]
     Active Substance: GOLIMUMAB
     Indication: Product used for unknown indication
  158. GOLIMUMAB [Concomitant]
     Active Substance: GOLIMUMAB
  159. HUMIRA [Concomitant]
     Active Substance: ADALIMUMAB
     Indication: Product used for unknown indication
  160. HUMIRA [Concomitant]
     Active Substance: ADALIMUMAB
  161. HUMIRA [Concomitant]
     Active Substance: ADALIMUMAB
  162. HUMIRA [Concomitant]
     Active Substance: ADALIMUMAB
  163. HUMIRA [Concomitant]
     Active Substance: ADALIMUMAB
  164. HYDROCORTISONE [Concomitant]
     Active Substance: HYDROCORTISONE
     Indication: Product used for unknown indication
  165. HYDROXYCHLOROQUINE [Concomitant]
     Active Substance: HYDROXYCHLOROQUINE
     Indication: Product used for unknown indication
  166. HYDROXYCHLOROQUINE [Concomitant]
     Active Substance: HYDROXYCHLOROQUINE
  167. HYDROXYCHLOROQUINE [Concomitant]
     Active Substance: HYDROXYCHLOROQUINE
  168. HYDROXYCHLOROQUINE [Concomitant]
     Active Substance: HYDROXYCHLOROQUINE
  169. HYDROXYCHLOROQUINE [Concomitant]
     Active Substance: HYDROXYCHLOROQUINE
  170. HYDROXYCHLOROQUINE [Concomitant]
     Active Substance: HYDROXYCHLOROQUINE
  171. HYDROXYCHLOROQUINE [Concomitant]
     Active Substance: HYDROXYCHLOROQUINE
  172. HYDROXYCHLOROQUINE [Concomitant]
     Active Substance: HYDROXYCHLOROQUINE
  173. HYDROXYCHLOROQUINE [Concomitant]
     Active Substance: HYDROXYCHLOROQUINE
  174. HYDROXYCHLOROQUINE SULFATE [Concomitant]
     Active Substance: HYDROXYCHLOROQUINE SULFATE
     Indication: Product used for unknown indication
  175. HYDROXYCHLOROQUINE SULFATE [Concomitant]
     Active Substance: HYDROXYCHLOROQUINE SULFATE
  176. HYDROXYCHLOROQUINE SULFATE [Concomitant]
     Active Substance: HYDROXYCHLOROQUINE SULFATE
  177. HYDROXYCHLOROQUINE SULFATE [Concomitant]
     Active Substance: HYDROXYCHLOROQUINE SULFATE
  178. HYDROXYCHLOROQUINE SULFATE [Concomitant]
     Active Substance: HYDROXYCHLOROQUINE SULFATE
  179. HYDROXYCHLOROQUINE SULFATE [Concomitant]
     Active Substance: HYDROXYCHLOROQUINE SULFATE
  180. HYDROXYCHLOROQUINE SULFATE [Concomitant]
     Active Substance: HYDROXYCHLOROQUINE SULFATE
  181. HYDROXYCHLOROQUINE SULFATE [Concomitant]
     Active Substance: HYDROXYCHLOROQUINE SULFATE
  182. HYDROXYCHLOROQUINE SULFATE [Concomitant]
     Active Substance: HYDROXYCHLOROQUINE SULFATE
  183. INFLIXIMAB [Concomitant]
     Active Substance: INFLIXIMAB
     Indication: Product used for unknown indication
  184. INFLIXIMAB [Concomitant]
     Active Substance: INFLIXIMAB
  185. INFLIXIMAB [Concomitant]
     Active Substance: INFLIXIMAB
  186. INFLIXIMAB [Concomitant]
     Active Substance: INFLIXIMAB
  187. INFLIXIMAB [Concomitant]
     Active Substance: INFLIXIMAB
  188. LAMICTAL [Concomitant]
     Active Substance: LAMOTRIGINE
     Indication: Product used for unknown indication
  189. LAMICTAL [Concomitant]
     Active Substance: LAMOTRIGINE
  190. LEFLUNOMIDE [Concomitant]
     Active Substance: LEFLUNOMIDE
     Indication: Product used for unknown indication
  191. LEFLUNOMIDE [Concomitant]
     Active Substance: LEFLUNOMIDE
  192. LEFLUNOMIDE [Concomitant]
     Active Substance: LEFLUNOMIDE
  193. LEFLUNOMIDE [Concomitant]
     Active Substance: LEFLUNOMIDE
  194. LEFLUNOMIDE [Concomitant]
     Active Substance: LEFLUNOMIDE
  195. LEFLUNOMIDE [Concomitant]
     Active Substance: LEFLUNOMIDE
  196. LEFLUNOMIDE [Concomitant]
     Active Substance: LEFLUNOMIDE
  197. LEFLUNOMIDE [Concomitant]
     Active Substance: LEFLUNOMIDE
  198. LEFLUNOMIDE [Concomitant]
     Active Substance: LEFLUNOMIDE
  199. LEFLUNOMIDE [Concomitant]
     Active Substance: LEFLUNOMIDE
  200. LEFLUNOMIDE [Concomitant]
     Active Substance: LEFLUNOMIDE
  201. METFORMIN HYDROCHLORIDE [Concomitant]
     Active Substance: METFORMIN HYDROCHLORIDE
     Indication: Product used for unknown indication
  202. METHOTREXATE [Concomitant]
     Active Substance: METHOTREXATE
     Indication: Product used for unknown indication
  203. METHOTREXATE [Concomitant]
     Active Substance: METHOTREXATE
  204. METHOTREXATE [Concomitant]
     Active Substance: METHOTREXATE
  205. METHOTREXATE [Concomitant]
     Active Substance: METHOTREXATE
  206. METHOTREXATE [Concomitant]
     Active Substance: METHOTREXATE
  207. METHOTREXATE [Concomitant]
     Active Substance: METHOTREXATE
  208. METHOTREXATE [Concomitant]
     Active Substance: METHOTREXATE
  209. METHOTREXATE [Concomitant]
     Active Substance: METHOTREXATE
  210. METHOTREXATE [Concomitant]
     Active Substance: METHOTREXATE
  211. METHOTREXATE [Concomitant]
     Active Substance: METHOTREXATE
  212. METHOTREXATE [Concomitant]
     Active Substance: METHOTREXATE
  213. METHOTREXATE [Concomitant]
     Active Substance: METHOTREXATE
  214. METHOTREXATE [Concomitant]
     Active Substance: METHOTREXATE
  215. METHOTREXATE [Concomitant]
     Active Substance: METHOTREXATE
  216. METHOTREXATE [Concomitant]
     Active Substance: METHOTREXATE
  217. METHOTREXATE [Concomitant]
     Active Substance: METHOTREXATE
  218. METHOTREXATE [Concomitant]
     Active Substance: METHOTREXATE
  219. METHOTREXATE [Concomitant]
     Active Substance: METHOTREXATE
  220. METHOTREXATE [Concomitant]
     Active Substance: METHOTREXATE
  221. METHOTREXATE [Concomitant]
     Active Substance: METHOTREXATE
  222. METHYLPREDNISOLONE [Concomitant]
     Active Substance: METHYLPREDNISOLONE
     Indication: Product used for unknown indication
  223. METHYLPREDNISOLONE SODIUM SUCCINATE [Concomitant]
     Active Substance: METHYLPREDNISOLONE SODIUM SUCCINATE
     Indication: Product used for unknown indication
  224. MINOCYCLINE [Concomitant]
     Active Substance: MINOCYCLINE HYDROCHLORIDE
     Indication: Product used for unknown indication
  225. MINOCYCLINE HYDROCHLORIDE [Concomitant]
     Active Substance: MINOCYCLINE HYDROCHLORIDE
     Indication: Product used for unknown indication
  226. MINOCYCLINE HYDROCHLORIDE [Concomitant]
     Active Substance: MINOCYCLINE HYDROCHLORIDE
  227. MYRBETRIQ [Concomitant]
     Active Substance: MIRABEGRON
     Indication: Product used for unknown indication
  228. MYRBETRIQ [Concomitant]
     Active Substance: MIRABEGRON
  229. MYRBETRIQ [Concomitant]
     Active Substance: MIRABEGRON
  230. NAPROXEN [Concomitant]
     Active Substance: NAPROXEN
     Indication: Product used for unknown indication
  231. NAPROXEN SODIUM [Concomitant]
     Active Substance: NAPROXEN SODIUM
     Indication: Product used for unknown indication
  232. NUCALA [Concomitant]
     Active Substance: MEPOLIZUMAB
     Indication: Product used for unknown indication
  233. OXYCODONE [Concomitant]
     Active Substance: OXYCODONE
     Indication: Product used for unknown indication
  234. OXYCODONE TEREPHTHALATE [Concomitant]
     Active Substance: OXYCODONE TEREPHTHALATE
     Indication: Product used for unknown indication
  235. PHENYLEPHRINE HYDROCHLORIDE [Concomitant]
     Active Substance: PHENYLEPHRINE HYDROCHLORIDE
     Indication: Product used for unknown indication
  236. PHTHALYLSULFATHIAZOLE [Concomitant]
     Active Substance: PHTHALYLSULFATHIAZOLE
     Indication: Product used for unknown indication
  237. PHTHALYLSULFATHIAZOLE [Concomitant]
     Active Substance: PHTHALYLSULFATHIAZOLE
  238. PHTHALYLSULFATHIAZOLE [Concomitant]
     Active Substance: PHTHALYLSULFATHIAZOLE
  239. PHTHALYLSULFATHIAZOLE [Concomitant]
     Active Substance: PHTHALYLSULFATHIAZOLE
  240. PHTHALYLSULFATHIAZOLE [Concomitant]
     Active Substance: PHTHALYLSULFATHIAZOLE
  241. PHTHALYLSULFATHIAZOLE [Concomitant]
     Active Substance: PHTHALYLSULFATHIAZOLE
  242. PHTHALYLSULFATHIAZOLE [Concomitant]
     Active Substance: PHTHALYLSULFATHIAZOLE
  243. PHTHALYLSULFATHIAZOLE [Concomitant]
     Active Substance: PHTHALYLSULFATHIAZOLE
  244. PREDNISONE [Concomitant]
     Active Substance: PREDNISONE
     Indication: Product used for unknown indication
  245. PREDNISONE [Concomitant]
     Active Substance: PREDNISONE
  246. PREDNISONE [Concomitant]
     Active Substance: PREDNISONE
  247. PREDNISONE [Concomitant]
     Active Substance: PREDNISONE
  248. PREDNISONE [Concomitant]
     Active Substance: PREDNISONE
  249. PREDNISONE [Concomitant]
     Active Substance: PREDNISONE
  250. PREDNISONE [Concomitant]
     Active Substance: PREDNISONE
  251. PREDNISONE [Concomitant]
     Active Substance: PREDNISONE
  252. PREDNISONE [Concomitant]
     Active Substance: PREDNISONE
  253. PREDNISONE [Concomitant]
     Active Substance: PREDNISONE
  254. PREDNISONE [Concomitant]
     Active Substance: PREDNISONE
  255. PREDNISONE [Concomitant]
     Active Substance: PREDNISONE
  256. PREDNISONE [Concomitant]
     Active Substance: PREDNISONE
  257. PREDNISONE [Concomitant]
     Active Substance: PREDNISONE
  258. PREDNISONE [Concomitant]
     Active Substance: PREDNISONE
  259. PREDNISONE [Concomitant]
     Active Substance: PREDNISONE
  260. PSEUDOEPHEDRINE HYDROCHLORIDE [Concomitant]
     Active Substance: PSEUDOEPHEDRINE HYDROCHLORIDE
     Indication: Product used for unknown indication
  261. PSEUDOEPHEDRINE HYDROCHLORIDE [Concomitant]
     Active Substance: PSEUDOEPHEDRINE HYDROCHLORIDE
  262. PSEUDOEPHEDRINE HYDROCHLORIDE [Concomitant]
     Active Substance: PSEUDOEPHEDRINE HYDROCHLORIDE
  263. PSEUDOEPHEDRINE HYDROCHLORIDE [Concomitant]
     Active Substance: PSEUDOEPHEDRINE HYDROCHLORIDE
  264. RAMIPRIL [Concomitant]
     Active Substance: RAMIPRIL
     Indication: Product used for unknown indication
  265. RAMIPRIL [Concomitant]
     Active Substance: RAMIPRIL
  266. RAMIPRIL [Concomitant]
     Active Substance: RAMIPRIL
  267. RAMIPRIL [Concomitant]
     Active Substance: RAMIPRIL
  268. RANITIDINE [Concomitant]
     Active Substance: RANITIDINE
     Indication: Product used for unknown indication
  269. CETIRIZINE HYDROCHLORIDE\PSEUDOEPHEDRINE HYDROCHLORIDE [Concomitant]
     Active Substance: CETIRIZINE HYDROCHLORIDE\PSEUDOEPHEDRINE HYDROCHLORIDE
     Indication: Product used for unknown indication
  270. CETIRIZINE HYDROCHLORIDE\PSEUDOEPHEDRINE HYDROCHLORIDE [Concomitant]
     Active Substance: CETIRIZINE HYDROCHLORIDE\PSEUDOEPHEDRINE HYDROCHLORIDE
  271. CETIRIZINE HYDROCHLORIDE\PSEUDOEPHEDRINE HYDROCHLORIDE [Concomitant]
     Active Substance: CETIRIZINE HYDROCHLORIDE\PSEUDOEPHEDRINE HYDROCHLORIDE
  272. CETIRIZINE HYDROCHLORIDE\PSEUDOEPHEDRINE HYDROCHLORIDE [Concomitant]
     Active Substance: CETIRIZINE HYDROCHLORIDE\PSEUDOEPHEDRINE HYDROCHLORIDE
  273. CETIRIZINE HYDROCHLORIDE\PSEUDOEPHEDRINE HYDROCHLORIDE [Concomitant]
     Active Substance: CETIRIZINE HYDROCHLORIDE\PSEUDOEPHEDRINE HYDROCHLORIDE
  274. CETIRIZINE HYDROCHLORIDE\PSEUDOEPHEDRINE HYDROCHLORIDE [Concomitant]
     Active Substance: CETIRIZINE HYDROCHLORIDE\PSEUDOEPHEDRINE HYDROCHLORIDE
  275. CETIRIZINE HYDROCHLORIDE\PSEUDOEPHEDRINE HYDROCHLORIDE [Concomitant]
     Active Substance: CETIRIZINE HYDROCHLORIDE\PSEUDOEPHEDRINE HYDROCHLORIDE
  276. REMICADE [Concomitant]
     Active Substance: INFLIXIMAB
     Indication: Product used for unknown indication
  277. REMICADE [Concomitant]
     Active Substance: INFLIXIMAB
  278. REMICADE [Concomitant]
     Active Substance: INFLIXIMAB
  279. REMICADE [Concomitant]
     Active Substance: INFLIXIMAB
  280. REMICADE [Concomitant]
     Active Substance: INFLIXIMAB
  281. REMICADE [Concomitant]
     Active Substance: INFLIXIMAB
  282. REMICADE [Concomitant]
     Active Substance: INFLIXIMAB
  283. REMICADE [Concomitant]
     Active Substance: INFLIXIMAB
  284. REMICADE [Concomitant]
     Active Substance: INFLIXIMAB
  285. REMICADE [Concomitant]
     Active Substance: INFLIXIMAB
  286. RITUXIMAB [Concomitant]
     Active Substance: RITUXIMAB
     Indication: Product used for unknown indication
  287. RITUXIMAB [Concomitant]
     Active Substance: RITUXIMAB
  288. RITUXIMAB [Concomitant]
     Active Substance: RITUXIMAB
  289. RITUXIMAB [Concomitant]
     Active Substance: RITUXIMAB
  290. RITUXIMAB [Concomitant]
     Active Substance: RITUXIMAB
  291. RITUXIMAB [Concomitant]
     Active Substance: RITUXIMAB
  292. RITUXIMAB [Concomitant]
     Active Substance: RITUXIMAB
  293. RITUXIMAB [Concomitant]
     Active Substance: RITUXIMAB
  294. RITUXIMAB [Concomitant]
     Active Substance: RITUXIMAB
  295. RITUXIMAB [Concomitant]
     Active Substance: RITUXIMAB
  296. SULFASALAZINE [Concomitant]
     Active Substance: SULFASALAZINE
     Indication: Product used for unknown indication
  297. SIMPONI [Concomitant]
     Active Substance: GOLIMUMAB
     Indication: Product used for unknown indication
  298. SIMPONI [Concomitant]
     Active Substance: GOLIMUMAB
  299. SIMPONI [Concomitant]
     Active Substance: GOLIMUMAB
  300. SIMPONI [Concomitant]
     Active Substance: GOLIMUMAB
  301. SIMPONI [Concomitant]
     Active Substance: GOLIMUMAB
  302. SIMPONI [Concomitant]
     Active Substance: GOLIMUMAB
  303. SIMPONI [Concomitant]
     Active Substance: GOLIMUMAB
  304. SIRUKUMAB [Concomitant]
     Active Substance: SIRUKUMAB
     Indication: Product used for unknown indication
  305. GOLD SODIUM THIOMALATE [Concomitant]
     Active Substance: GOLD SODIUM THIOMALATE
     Indication: Product used for unknown indication
  306. GOLD SODIUM THIOMALATE [Concomitant]
     Active Substance: GOLD SODIUM THIOMALATE
  307. STELARA [Concomitant]
     Active Substance: USTEKINUMAB
     Indication: Product used for unknown indication
  308. STELARA [Concomitant]
     Active Substance: USTEKINUMAB
  309. STELARA [Concomitant]
     Active Substance: USTEKINUMAB
     Dosage: SOLUTION SUBCUTANEOUS
  310. STELARA [Concomitant]
     Active Substance: USTEKINUMAB
  311. STELARA [Concomitant]
     Active Substance: USTEKINUMAB
  312. SULFASALAZINE [Concomitant]
     Active Substance: SULFASALAZINE
     Indication: Product used for unknown indication
  313. SULFASALAZINE [Concomitant]
     Active Substance: SULFASALAZINE
  314. SULFASALAZINE [Concomitant]
     Active Substance: SULFASALAZINE
  315. SULFASALAZINE [Concomitant]
     Active Substance: SULFASALAZINE
  316. SULFASALAZINE [Concomitant]
     Active Substance: SULFASALAZINE
  317. SULFASALAZINE [Concomitant]
     Active Substance: SULFASALAZINE
  318. SULFASALAZINE [Concomitant]
     Active Substance: SULFASALAZINE
  319. SULFASALAZINE [Concomitant]
     Active Substance: SULFASALAZINE
  320. SULFASALAZINE [Concomitant]
     Active Substance: SULFASALAZINE
  321. SULFASALAZINE [Concomitant]
     Active Substance: SULFASALAZINE
  322. SULFASALAZINE [Concomitant]
     Active Substance: SULFASALAZINE
  323. SULFASALAZINE [Concomitant]
     Active Substance: SULFASALAZINE
  324. SULFASALAZINE [Concomitant]
     Active Substance: SULFASALAZINE
  325. SULFASALAZINE [Concomitant]
     Active Substance: SULFASALAZINE
  326. SULFASALAZINE [Concomitant]
     Active Substance: SULFASALAZINE
  327. SULFASALAZINE [Concomitant]
     Active Substance: SULFASALAZINE
  328. SULFASALAZINE [Concomitant]
     Active Substance: SULFASALAZINE
  329. SULFASALAZINE [Concomitant]
     Active Substance: SULFASALAZINE
  330. SULFASALAZINE [Concomitant]
     Active Substance: SULFASALAZINE
  331. SULFASALAZINE [Concomitant]
     Active Substance: SULFASALAZINE
  332. SULFASALAZINE [Concomitant]
     Active Substance: SULFASALAZINE
  333. SULFASALAZINE [Concomitant]
     Active Substance: SULFASALAZINE
  334. SULFASALAZINE [Concomitant]
     Active Substance: SULFASALAZINE
  335. TOCILIZUMAB [Concomitant]
     Active Substance: TOCILIZUMAB
     Indication: Product used for unknown indication
  336. TOCILIZUMAB [Concomitant]
     Active Substance: TOCILIZUMAB
  337. TOCILIZUMAB [Concomitant]
     Active Substance: TOCILIZUMAB
  338. TOCILIZUMAB [Concomitant]
     Active Substance: TOCILIZUMAB
  339. TOCILIZUMAB [Concomitant]
     Active Substance: TOCILIZUMAB
  340. TOCILIZUMAB [Concomitant]
     Active Substance: TOCILIZUMAB
  341. TOCILIZUMAB [Concomitant]
     Active Substance: TOCILIZUMAB
  342. TOFACITINIB [Concomitant]
     Active Substance: TOFACITINIB
     Indication: Product used for unknown indication
  343. TOFACITINIB [Concomitant]
     Active Substance: TOFACITINIB
  344. TOFACITINIB CITRATE [Concomitant]
     Active Substance: TOFACITINIB CITRATE
     Indication: Product used for unknown indication
  345. TOFACITINIB CITRATE [Concomitant]
     Active Substance: TOFACITINIB CITRATE
  346. TOPIRAMATE [Concomitant]
     Active Substance: TOPIRAMATE
     Indication: Product used for unknown indication
  347. TOPIRAMATE [Concomitant]
     Active Substance: TOPIRAMATE
  348. TOPIRAMATE [Concomitant]
     Active Substance: TOPIRAMATE
  349. TRAMADOL HYDROCHLORIDE [Concomitant]
     Active Substance: TRAMADOL HYDROCHLORIDE
     Indication: Product used for unknown indication
  350. TRAMADOL HYDROCHLORIDE [Concomitant]
     Active Substance: TRAMADOL HYDROCHLORIDE
  351. USTEKINUMAB [Concomitant]
     Active Substance: USTEKINUMAB
     Indication: Product used for unknown indication
  352. USTEKINUMAB [Concomitant]
     Active Substance: USTEKINUMAB
  353. USTEKINUMAB [Concomitant]
     Active Substance: USTEKINUMAB
  354. USTEKINUMAB [Concomitant]
     Active Substance: USTEKINUMAB
  355. XELJANZ [Concomitant]
     Active Substance: TOFACITINIB CITRATE
     Indication: Product used for unknown indication
  356. XELJANZ [Concomitant]
     Active Substance: TOFACITINIB CITRATE
  357. XELJANZ [Concomitant]
     Active Substance: TOFACITINIB CITRATE
  358. XELJANZ [Concomitant]
     Active Substance: TOFACITINIB CITRATE
  359. XELJANZ [Concomitant]
     Active Substance: TOFACITINIB CITRATE
  360. XELJANZ [Concomitant]
     Active Substance: TOFACITINIB CITRATE
  361. XELJANZ [Concomitant]
     Active Substance: TOFACITINIB CITRATE
  362. XELJANZ [Concomitant]
     Active Substance: TOFACITINIB CITRATE
  363. XELJANZ [Concomitant]
     Active Substance: TOFACITINIB CITRATE
  364. XELJANZ [Concomitant]
     Active Substance: TOFACITINIB CITRATE
  365. XELJANZ [Concomitant]
     Active Substance: TOFACITINIB CITRATE
  366. XELJANZ [Concomitant]
     Active Substance: TOFACITINIB CITRATE
  367. XELJANZ [Concomitant]
     Active Substance: TOFACITINIB CITRATE
  368. XELJANZ [Concomitant]
     Active Substance: TOFACITINIB CITRATE
  369. XELJANZ [Concomitant]
     Active Substance: TOFACITINIB CITRATE
  370. XELJANZ [Concomitant]
     Active Substance: TOFACITINIB CITRATE
  371. ALENDRONATE SODIUM\CHOLECALCIFEROL [Concomitant]
     Active Substance: ALENDRONATE SODIUM\CHOLECALCIFEROL
     Indication: Product used for unknown indication
  372. ACETAMINOPHEN\CAFFEINE\CODEINE PHOSPHATE [Concomitant]
     Active Substance: ACETAMINOPHEN\CAFFEINE\CODEINE PHOSPHATE
     Indication: Product used for unknown indication
  373. DICLOFENAC SODIUM [Concomitant]
     Active Substance: DICLOFENAC SODIUM
     Indication: Product used for unknown indication
     Dosage: TABLET (ENTERIC- COATED)
  374. ATOMOXETINE HYDROCHLORIDE [Concomitant]
     Active Substance: ATOMOXETINE HYDROCHLORIDE
     Indication: Product used for unknown indication
     Dosage: POWDER FOR?SOLUTION?INTRAVENOUS
  375. CALCIUM CARBONATE [Concomitant]
     Active Substance: CALCIUM CARBONATE
     Indication: Product used for unknown indication
  376. DIETARY SUPPLEMENT\MINERALS\VITAMINS [Concomitant]
     Active Substance: DIETARY SUPPLEMENT\MINERALS\VITAMINS
     Indication: Product used for unknown indication
     Dosage: CATAPLEX D TAB 400UNIT
  377. DIETARY SUPPLEMENT\MINERALS\VITAMINS [Concomitant]
     Active Substance: DIETARY SUPPLEMENT\MINERALS\VITAMINS
     Dosage: CATAPLEX D TAB 400UNIT
  378. MENTHOL\ZINC OXIDE [Concomitant]
     Active Substance: MENTHOL\ZINC OXIDE
     Indication: Product used for unknown indication
  379. METFORMIN HYDROCHLORIDE [Concomitant]
     Active Substance: METFORMIN HYDROCHLORIDE
     Indication: Product used for unknown indication
  380. MYOCHRYSINE [Concomitant]
     Active Substance: GOLD SODIUM THIOMALATE
     Indication: Product used for unknown indication
     Dosage: SOLUTION INTRAMUSCULA
  381. PREPARATION H [AESCULUS HIPPOCASTANUM SEED;BUTYL AMINOBENZOATE;HALIBUT [Concomitant]
     Indication: Product used for unknown indication
  382. RANITIDINE HYDROCHLORIDE [Concomitant]
     Active Substance: RANITIDINE HYDROCHLORIDE
     Indication: Product used for unknown indication
  383. CETIRIZINE HYDROCHLORIDE [Concomitant]
     Active Substance: CETIRIZINE HYDROCHLORIDE
     Indication: Product used for unknown indication
  384. CETIRIZINE HYDROCHLORIDE [Concomitant]
     Active Substance: CETIRIZINE HYDROCHLORIDE
  385. CETIRIZINE HYDROCHLORIDE [Concomitant]
     Active Substance: CETIRIZINE HYDROCHLORIDE
  386. CETIRIZINE HYDROCHLORIDE [Concomitant]
     Active Substance: CETIRIZINE HYDROCHLORIDE
  387. ACETAMINOPHEN\CODEINE PHOSPHATE [Concomitant]
     Active Substance: ACETAMINOPHEN\CODEINE PHOSPHATE
     Indication: Product used for unknown indication
  388. ALENDRONATE SODIUM [Concomitant]
     Active Substance: ALENDRONATE SODIUM
     Indication: Product used for unknown indication
  389. ALENDRONATE SODIUM [Concomitant]
     Active Substance: ALENDRONATE SODIUM
  390. ALENDRONATE SODIUM\CHOLECALCIFEROL [Concomitant]
     Active Substance: ALENDRONATE SODIUM\CHOLECALCIFEROL
     Indication: Product used for unknown indication
  391. CALCIUM GLUBIONATE [Concomitant]
     Active Substance: CALCIUM GLUBIONATE
     Indication: Product used for unknown indication
  392. CORTISONE [Concomitant]
     Active Substance: CORTISONE
     Indication: Product used for unknown indication
  393. CORTISONE [Concomitant]
     Active Substance: CORTISONE
  394. DESOGESTREL AND ETHINYL ESTRADIOL [Concomitant]
     Active Substance: DESOGESTREL\ETHINYL ESTRADIOL
     Indication: Product used for unknown indication
  395. DICLOFENAC POTASSIUM [Concomitant]
     Active Substance: DICLOFENAC POTASSIUM
     Indication: Product used for unknown indication
  396. DICLOFENAC POTASSIUM [Concomitant]
     Active Substance: DICLOFENAC POTASSIUM
  397. ERGOCALCIFEROL [Concomitant]
     Active Substance: ERGOCALCIFEROL
     Indication: Product used for unknown indication
  398. FOLIC ACID [Concomitant]
     Active Substance: FOLIC ACID
     Indication: Product used for unknown indication
  399. FOLIC ACID [Concomitant]
     Active Substance: FOLIC ACID
  400. FOLIC ACID [Concomitant]
     Active Substance: FOLIC ACID
  401. FOLIC ACID [Concomitant]
     Active Substance: FOLIC ACID
  402. FOLIC ACID [Concomitant]
     Active Substance: FOLIC ACID
  403. FOLIC ACID [Concomitant]
     Active Substance: FOLIC ACID
  404. ISOPROPYL ALCOHOL [Concomitant]
     Active Substance: ISOPROPYL ALCOHOL
     Indication: Product used for unknown indication
     Dosage: LIQUID TOPICAL
  405. NAPROXEN [Concomitant]
     Active Substance: NAPROXEN
     Indication: Product used for unknown indication
  406. NAPROXEN [Concomitant]
     Active Substance: NAPROXEN
  407. NEOMYCIN SULFATE [Concomitant]
     Active Substance: NEOMYCIN SULFATE
     Indication: Product used for unknown indication
  408. PERIOGARD [Concomitant]
     Active Substance: CHLORHEXIDINE GLUCONATE
     Indication: Product used for unknown indication
  409. RIBOFLAVIN [Concomitant]
     Active Substance: RIBOFLAVIN
     Indication: Product used for unknown indication
  410. HYDROCORTISONE [Concomitant]
     Active Substance: HYDROCORTISONE
     Indication: Product used for unknown indication
  411. SULFAMETHOXAZOLE [Concomitant]
     Active Substance: SULFAMETHOXAZOLE
     Indication: Product used for unknown indication
  412. SULFAMETHOXAZOLE\TRIMETHOPRIM [Concomitant]
     Active Substance: SULFAMETHOXAZOLE\TRIMETHOPRIM
     Indication: Product used for unknown indication
  413. THIAMINE HYDROCHLORIDE [Concomitant]
     Active Substance: THIAMINE HYDROCHLORIDE
     Indication: Product used for unknown indication
  414. TUMS [Concomitant]
     Active Substance: CALCIUM CARBONATE
     Indication: Product used for unknown indication
  415. RETINOL [Concomitant]
     Active Substance: RETINOL
     Indication: Product used for unknown indication
  416. VITAMIN D3 [Concomitant]
     Active Substance: CHOLECALCIFEROL
     Indication: Product used for unknown indication
  417. VITAMIN D3 [Concomitant]
     Active Substance: CHOLECALCIFEROL
  418. DICLOFENAC DIETHYLAMINE [Concomitant]
     Active Substance: DICLOFENAC DIETHYLAMINE
     Indication: Product used for unknown indication
  419. DICLOFENAC DIETHYLAMINE [Concomitant]
     Active Substance: DICLOFENAC DIETHYLAMINE
  420. CALCIUM\CHOLECALCIFEROL [Concomitant]
     Active Substance: CALCIUM\CHOLECALCIFEROL
     Indication: Product used for unknown indication
  421. CETIRIZINE [Concomitant]
     Active Substance: CETIRIZINE HYDROCHLORIDE
     Indication: Product used for unknown indication
  422. CETIRIZINE [Concomitant]
     Active Substance: CETIRIZINE HYDROCHLORIDE
  423. CETIRIZINE [Concomitant]
     Active Substance: CETIRIZINE HYDROCHLORIDE
  424. CETIRIZINE [Concomitant]
     Active Substance: CETIRIZINE HYDROCHLORIDE
  425. CETIRIZINE [Concomitant]
     Active Substance: CETIRIZINE HYDROCHLORIDE
  426. CETIRIZINE [Concomitant]
     Active Substance: CETIRIZINE HYDROCHLORIDE
  427. CETIRIZINE [Concomitant]
     Active Substance: CETIRIZINE HYDROCHLORIDE
  428. CETIRIZINE [Concomitant]
     Active Substance: CETIRIZINE HYDROCHLORIDE
  429. CETIRIZINE [Concomitant]
     Active Substance: CETIRIZINE HYDROCHLORIDE
  430. CETIRIZINE [Concomitant]
     Active Substance: CETIRIZINE HYDROCHLORIDE
  431. CETIRIZINE [Concomitant]
     Active Substance: CETIRIZINE HYDROCHLORIDE
  432. DICLOFENAC [Concomitant]
     Active Substance: DICLOFENAC
     Indication: Product used for unknown indication
  433. DICLOFENAC [Concomitant]
     Active Substance: DICLOFENAC
  434. ERENUMAB-AOOE [Concomitant]
     Active Substance: ERENUMAB-AOOE
     Indication: Product used for unknown indication
  435. FLUMETHASONE\SALICYLIC ACID [Concomitant]
     Active Substance: FLUMETHASONE\SALICYLIC ACID
     Indication: Product used for unknown indication
  436. METHYLPREDNISOLONE ACETATE [Concomitant]
     Active Substance: METHYLPREDNISOLONE ACETATE
     Indication: Product used for unknown indication
  437. NICOTINAMIDE [Concomitant]
     Active Substance: NIACINAMIDE
     Indication: Product used for unknown indication
  438. MAGNESIUM CITRATE [Concomitant]
     Active Substance: MAGNESIUM CITRATE
     Indication: Product used for unknown indication
  439. AZATHIOPRINE [Concomitant]
     Active Substance: AZATHIOPRINE
     Indication: Product used for unknown indication
  440. CAFFEINE/CHLORPHENAMINE MALEATE/ISOPROPAMIDE IODIDE/LYSOZYME HYDROCHLO [Concomitant]
     Indication: Product used for unknown indication
  441. CAFFEINE/CHLORPHENAMINE MALEATE/ISOPROPAMIDE IODIDE/LYSOZYME HYDROCHLO [Concomitant]
  442. CALCIUM CARBONATE\CHOLECALCIFEROL [Concomitant]
     Active Substance: CALCIUM CARBONATE\CHOLECALCIFEROL
     Indication: Product used for unknown indication
  443. CALCIUM CITRATE [Concomitant]
     Active Substance: CALCIUM CITRATE
     Indication: Product used for unknown indication
  444. CELECOXIB [Concomitant]
     Active Substance: CELECOXIB
     Indication: Product used for unknown indication
  445. CELECOXIB [Concomitant]
     Active Substance: CELECOXIB
  446. CELECOXIB [Concomitant]
     Active Substance: CELECOXIB
  447. CELECOXIB [Concomitant]
     Active Substance: CELECOXIB
  448. CELECOXIB [Concomitant]
     Active Substance: CELECOXIB
  449. CHLORHEXIDINE GLUCONATE [Concomitant]
     Active Substance: CHLORHEXIDINE GLUCONATE
     Indication: Product used for unknown indication
  450. HAIR KERATIN AMINO ACIDS GOLD COMPLEX [Concomitant]
     Active Substance: HAIR KERATIN AMINO ACIDS GOLD COMPLEX
     Indication: Product used for unknown indication
  451. HYDROCORTISONE PROBUTATE [Concomitant]
     Active Substance: HYDROCORTISONE PROBUTATE
     Indication: Product used for unknown indication
  452. HYRIMOZ [Concomitant]
     Active Substance: ADALIMUMAB-ADAZ
     Indication: Product used for unknown indication
  453. HYRIMOZ [Concomitant]
     Active Substance: ADALIMUMAB-ADAZ
  454. IODIPAMIDE MEGLUMINE [Concomitant]
     Active Substance: IODIPAMIDE MEGLUMINE
     Indication: Product used for unknown indication
  455. OTEZLA [Concomitant]
     Active Substance: APREMILAST
     Indication: Product used for unknown indication
  456. PLAQUENIL [Concomitant]
     Active Substance: HYDROXYCHLOROQUINE SULFATE
     Indication: Product used for unknown indication
  457. PSEUDOEPHEDRINE [Concomitant]
     Active Substance: PSEUDOEPHEDRINE
     Indication: Product used for unknown indication
  458. PSEUDOEPHEDRINE [Concomitant]
     Active Substance: PSEUDOEPHEDRINE
  459. APREMILAST [Concomitant]
     Active Substance: APREMILAST
     Indication: Product used for unknown indication
  460. CANDESARTAN CILEXETIL [Concomitant]
     Active Substance: CANDESARTAN CILEXETIL
     Indication: Product used for unknown indication
  461. DICLOFENAC SODIUM [Concomitant]
     Active Substance: DICLOFENAC SODIUM
     Indication: Product used for unknown indication
  462. DICLOFENAC SODIUM [Concomitant]
     Active Substance: DICLOFENAC SODIUM
  463. LEFLUNOMIDE [Concomitant]
     Active Substance: LEFLUNOMIDE
     Indication: Product used for unknown indication
  464. LEFLUNOMIDE [Concomitant]
     Active Substance: LEFLUNOMIDE
  465. LEFLUNOMIDE [Concomitant]
     Active Substance: LEFLUNOMIDE
  466. TOPIRAMATE [Concomitant]
     Active Substance: TOPIRAMATE
     Indication: Product used for unknown indication
  467. TOPIRAMATE [Concomitant]
     Active Substance: TOPIRAMATE
  468. TOPIRAMATE [Concomitant]
     Active Substance: TOPIRAMATE
  469. VITAMIN C [Concomitant]
     Active Substance: ASCORBIC ACID
     Indication: Product used for unknown indication
  470. HYDROCORTISONE SODIUM SUCCINATE [Concomitant]
     Active Substance: HYDROCORTISONE SODIUM SUCCINATE
     Indication: Product used for unknown indication
  471. METHOTREXATE SODIUM [Concomitant]
     Active Substance: METHOTREXATE SODIUM
     Indication: Product used for unknown indication
  472. METHOTREXATE SODIUM [Concomitant]
     Active Substance: METHOTREXATE SODIUM
  473. OXYCODONE HYDROCHLORIDE [Concomitant]
     Active Substance: OXYCODONE HYDROCHLORIDE
     Indication: Product used for unknown indication

REACTIONS (2)
  - Foetal exposure during pregnancy [Unknown]
  - Congenital anomaly [Unknown]
